FAERS Safety Report 17828113 (Version 2)
Quarter: 2020Q2

REPORT INFORMATION
  Report Type: Spontaneous
  Country: MY (occurrence: MY)
  Receive Date: 20200527
  Receipt Date: 20200602
  Transmission Date: 20200714
  Serious: Yes (Hospitalization, Other)
  Sender: FDA-Public Use
  Company Number: MY-PFIZER INC-2020208280

PATIENT
  Age: 35 Year
  Sex: Female

DRUGS (8)
  1. PREDNISOLONE. [Suspect]
     Active Substance: PREDNISOLONE
     Dosage: 0.5 MG/KG, 1X/DAY
     Route: 048
     Dates: start: 2019
  2. AZATHIOPRINE. [Suspect]
     Active Substance: AZATHIOPRINE
     Indication: SYSTEMIC LUPUS ERYTHEMATOSUS
     Dosage: 125 MG, 1X/DAY
     Dates: start: 2010
  3. PREDNISOLONE. [Suspect]
     Active Substance: PREDNISOLONE
     Indication: LUPUS NEPHRITIS
     Dosage: 5 MG, 1X/DAY
     Dates: start: 2010
  4. CYCLOPHOSPHAMIDE. [Suspect]
     Active Substance: CYCLOPHOSPHAMIDE
     Indication: LUPUS NEPHRITIS
     Dosage: 0.5 G/M2
     Route: 042
     Dates: start: 2019
  5. PREDNISOLONE. [Suspect]
     Active Substance: PREDNISOLONE
     Indication: SYSTEMIC LUPUS ERYTHEMATOSUS
     Dosage: 1 MG/KG, 1X/DAY
     Route: 048
     Dates: start: 2013
  6. PREDNISOLONE. [Suspect]
     Active Substance: PREDNISOLONE
     Dosage: 0.75 MG/KG, 1X/DAY
     Route: 048
     Dates: start: 2012
  7. METHYLPREDNISOLONE SODIUM SUCCINATE. [Suspect]
     Active Substance: METHYLPREDNISOLONE SODIUM SUCCINATE
     Indication: LUPUS NEPHRITIS
     Dosage: 500 MG, 1X/DAY
     Route: 042
     Dates: start: 2019
  8. HYDROXYCHLOROQUINE [Concomitant]
     Active Substance: HYDROXYCHLOROQUINE
     Indication: SYSTEMIC LUPUS ERYTHEMATOSUS
     Dosage: 400 MG, 1X/DAY
     Dates: start: 2010

REACTIONS (4)
  - Extrapulmonary tuberculosis [Recovering/Resolving]
  - Tenosynovitis [Recovered/Resolved]
  - Mycobacterial infection [Recovering/Resolving]
  - Bone tuberculosis [Recovering/Resolving]

NARRATIVE: CASE EVENT DATE: 201907
